FAERS Safety Report 8112505-0 (Version None)
Quarter: 2012Q1

REPORT INFORMATION
  Report Type: 
  Country: None (occurrence: None)
  Receive Date: 20120203
  Receipt Date: 20120123
  Transmission Date: 20120608
  Serious: Yes (Hospitalization, Other)
  Sender: FDA-Public Use
  Company Number: CA-JNJFOC-20120200567

PATIENT
  Sex: Female
  Weight: 44 kg

DRUGS (7)
  1. CALCIUM [Concomitant]
     Route: 065
  2. REMICADE [Suspect]
     Indication: CROHN'S DISEASE
     Route: 042
     Dates: start: 20060928
  3. METHOTREXATE [Concomitant]
     Route: 065
  4. VITAMIN B-12 [Concomitant]
     Route: 065
  5. VITAMIN D [Concomitant]
     Route: 065
  6. ELAVIL [Concomitant]
     Route: 048
  7. FERROUS SULFATE TAB [Concomitant]
     Route: 065

REACTIONS (4)
  - INTESTINAL OBSTRUCTION [None]
  - HAEMOGLOBIN DECREASED [None]
  - MENORRHAGIA [None]
  - FEELING HOT [None]
